FAERS Safety Report 11183869 (Version 1)
Quarter: 2015Q2

REPORT INFORMATION
  Report Type: Spontaneous
  Country: FR (occurrence: FR)
  Receive Date: 20150612
  Receipt Date: 20150612
  Transmission Date: 20150821
  Serious: Yes (Hospitalization)
  Sender: FDA-Public Use
  Company Number: FR-009507513-1506FRA002964

PATIENT
  Age: 35 Year
  Sex: Female

DRUGS (10)
  1. PHLOROGLUCINOL [Suspect]
     Active Substance: PHLOROGLUCINOL
     Dosage: 6 TABLETS, 1 IN 24 HOURS
     Route: 042
     Dates: start: 20150329
  2. MAGNE B6 [Concomitant]
     Active Substance: MAGNESIUM\PYRIDOXINE
     Dosage: 1 TABLET, TID
     Route: 048
     Dates: start: 20150329
  3. PERFALGAN [Concomitant]
     Active Substance: ACETAMINOPHEN
     Dosage: UNK
     Route: 042
     Dates: end: 20150331
  4. LOXEN [Suspect]
     Active Substance: NICARDIPINE HYDROCHLORIDE
     Indication: PREMATURE DELIVERY
     Dosage: 10 MG, UNK
     Route: 042
     Dates: start: 20150329, end: 20150331
  5. TRACTOCILE [Suspect]
     Active Substance: ATOSIBAN
     Indication: PREMATURE DELIVERY
     Dosage: UNK
     Route: 042
     Dates: start: 20150331, end: 20150401
  6. DEBRIDAT [Concomitant]
     Active Substance: TRIMEBUTINE MALEATE
     Dosage: 1 TABLET, TID
     Route: 042
     Dates: start: 20150331, end: 20150401
  7. CELESTENE 4MG/1ML [Suspect]
     Active Substance: BETAMETHASONE
     Dosage: 12 MG, UNK
     Route: 030
     Dates: start: 20150329, end: 20150330
  8. INEXIUM (ESOMEPRAZOLE SODIUM) [Concomitant]
     Active Substance: ESOMEPRAZOLE
     Dosage: UNK
     Route: 042
     Dates: start: 20150331, end: 20150401
  9. ELECTROLYTES (UNSPECIFIED) (+) SODIUM LACTATE [Suspect]
     Active Substance: ELECTROLYTES NOS\SODIUM LACTATE
     Dosage: UNK
     Route: 042
     Dates: start: 20150331, end: 20150401
  10. ATARAX [Concomitant]
     Active Substance: HYDROXYZINE\HYDROXYZINE HYDROCHLORIDE
     Dosage: 25 MG, UNK
     Route: 048
     Dates: end: 20150331

REACTIONS (3)
  - Pericardial effusion [Recovered/Resolved]
  - Pulmonary oedema [Recovered/Resolved]
  - Pleurisy [Recovered/Resolved]

NARRATIVE: CASE EVENT DATE: 20150401
